FAERS Safety Report 10792664 (Version 1)
Quarter: 2015Q1

REPORT INFORMATION
  Report Type: Spontaneous
  Country: US (occurrence: None)
  Receive Date: 20150211
  Receipt Date: 20150211
  Transmission Date: 20150721
  Serious: Yes (Hospitalization, Other)
  Sender: FDA-Public Use
  Company Number: LH2015000094

PATIENT
  Age: 26 Year
  Sex: Female

DRUGS (3)
  1. MAKENA [Suspect]
     Active Substance: HYDROXYPROGESTERONE CAPROATE
     Indication: PREMATURE DELIVERY
     Route: 030
     Dates: start: 20141105, end: 20150123
  2. IRON [Concomitant]
     Active Substance: IRON
  3. PRENATAL VITAMINS [Concomitant]
     Active Substance: VITAMINS

REACTIONS (4)
  - Premature labour [None]
  - Exposure during pregnancy [None]
  - Haemorrhage in pregnancy [None]
  - Premature delivery [None]

NARRATIVE: CASE EVENT DATE: 20150124
